FAERS Safety Report 14900467 (Version 1)
Quarter: 2018Q2

REPORT INFORMATION
  Report Type: Spontaneous
  Country: AT (occurrence: AT)
  Receive Date: 20180516
  Receipt Date: 20180516
  Transmission Date: 20180711
  Serious: Yes (Hospitalization)
  Sender: FDA-Public Use
  Company Number: AT-TEVA-2018-AT-893513

PATIENT
  Age: 87 Year
  Sex: Female

DRUGS (6)
  1. DAFLON 500 MG - FILMTABLETTEN [Concomitant]
     Dosage: 1-0-1-0 (SINCE MONTHS)
  2. TRITTICO RETARD 150 MG - TABLETTEN [Concomitant]
     Dosage: SINCE MONTHS
  3. TEBOFORTAN 40 MG - FILMTABLETTEN [Concomitant]
     Dosage: 1-0-0-0 (SINCE MONTHS)
  4. MAGNESIUM VERLA - FILMTABLETTEN [Concomitant]
     Dosage: 1-0-1-0 (SINCE MONTHS)
  5. MOXIFLOXACIN. [Suspect]
     Active Substance: MOXIFLOXACIN
     Indication: PROPHYLAXIS
     Dosage: 400 MG, 1 TABL. TAEGLICH
     Dates: start: 20180129, end: 20180201
  6. CONCOR 5 MG - FILMTABLETTEN [Concomitant]
     Dosage: 0,5-0-0-0 (SINCE MONTHS)

REACTIONS (7)
  - Decreased appetite [Recovered/Resolved]
  - Cardiovascular disorder [Recovered/Resolved]
  - General physical health deterioration [Recovered/Resolved]
  - Fatigue [Recovered/Resolved]
  - Diarrhoea [Recovered/Resolved]
  - Hospitalisation [Recovered/Resolved]
  - Nausea [Recovered/Resolved]

NARRATIVE: CASE EVENT DATE: 2018
